FAERS Safety Report 6793644-3 (Version None)
Quarter: 2010Q2

REPORT INFORMATION
  Report Type: 
  Country: None (occurrence: None)
  Receive Date: 20100624
  Receipt Date: 20081216
  Transmission Date: 20101027
  Serious: No
  Sender: FDA-Public Use
  Company Number: US-PFIZER INC-2008159097

PATIENT
  Sex: Female
  Weight: 165 kg

DRUGS (1)
  1. GENOTROPIN [Suspect]
     Indication: PITUITARY HAEMORRHAGE

REACTIONS (1)
  - NO ADVERSE EVENT [None]
